FAERS Safety Report 17515504 (Version 2)
Quarter: 2020Q2

REPORT INFORMATION
  Report Type: Spontaneous
  Country: US (occurrence: US)
  Receive Date: 20200309
  Receipt Date: 20200427
  Transmission Date: 20200713
  Serious: Yes (Death, Other)
  Sender: FDA-Public Use
  Company Number: US-GLAND PHARMA LIMITED-2081395

PATIENT
  Age: 80 Year
  Sex: Male
  Weight: 99.8 kg

DRUGS (17)
  1. OXALIPLATIN. [Suspect]
     Active Substance: OXALIPLATIN
     Route: 042
     Dates: start: 20200217, end: 20200217
  2. METOPROLOL SUCCINATE ER [Concomitant]
     Active Substance: METOPROLOL SUCCINATE
  3. ONDANSETRON [Concomitant]
     Active Substance: ONDANSETRON
  4. DEXAMETHASONE. [Concomitant]
     Active Substance: DEXAMETHASONE
  5. OXALIPLATIN REGIMEN [Concomitant]
     Route: 042
     Dates: start: 20200217, end: 20200217
  6. AMLODIPINE [Concomitant]
     Active Substance: AMLODIPINE BESYLATE
  7. PALONOSETRON. [Suspect]
     Active Substance: PALONOSETRON HYDROCHLORIDE
     Route: 042
     Dates: start: 20200217
  8. PROCHLORPERAZINE MALEATE. [Concomitant]
     Active Substance: PROCHLORPERAZINE MALEATE
  9. OXALIPLATIN. [Suspect]
     Active Substance: OXALIPLATIN
     Indication: COLON CANCER
     Route: 042
  10. FOSAPREPITANT [Suspect]
     Active Substance: FOSAPREPITANT
     Route: 042
     Dates: start: 20200217
  11. POTASSIUM [Concomitant]
     Active Substance: POTASSIUM
  12. DEXAMETHASONE. [Suspect]
     Active Substance: DEXAMETHASONE
     Route: 042
     Dates: start: 20200217
  13. IRON [Concomitant]
     Active Substance: IRON
  14. MELOXICAM. [Concomitant]
     Active Substance: MELOXICAM
  15. PANTOPRAZOLE [Concomitant]
     Active Substance: PANTOPRAZOLE
  16. LEUCOVORIN. [Concomitant]
     Active Substance: LEUCOVORIN
     Route: 042
     Dates: start: 20200217
  17. ATROPINE SULFATE; DIPHENOXYLATE HYDROCHLORIDE [Concomitant]

REACTIONS (8)
  - Death [None]
  - Retching [Not Recovered/Not Resolved]
  - Oxygen saturation decreased [Not Recovered/Not Resolved]
  - Depressed level of consciousness [Not Recovered/Not Resolved]
  - Hyperhidrosis [Not Recovered/Not Resolved]
  - Dyspnoea [Not Recovered/Not Resolved]
  - Tachycardia [Not Recovered/Not Resolved]
  - Pallor [Not Recovered/Not Resolved]
